FAERS Safety Report 8859284 (Version 1)
Quarter: 2012Q4

REPORT INFORMATION
  Report Type: Spontaneous
  Country: IT (occurrence: None)
  Receive Date: 20121022
  Receipt Date: 20121022
  Transmission Date: 20130627
  Serious: Yes (Hospitalization)
  Sender: FDA-Public Use
  Company Number: 2012AP003327

PATIENT
  Age: 84 Year
  Sex: Male

DRUGS (4)
  1. CLARITHROMYCIN (CLARITHROMYCIN) [Suspect]
     Indication: BRONCHITIS
     Dates: start: 20120921, end: 20120928
  2. WARFARIN SODIUM [Suspect]
     Indication: PULMONARY THROMBOEMBOLISM
     Route: 048
     Dates: start: 20120801, end: 20120928
  3. ANDROCUR (CYPROTERONE ACETATE) [Concomitant]
  4. VERAPAMIL HCL (VERAPAMIL HYDROCHLORIDE) [Concomitant]

REACTIONS (2)
  - Drug interaction [None]
  - Hypocoagulable state [None]
